FAERS Safety Report 24019353 (Version 3)
Quarter: 2024Q3

REPORT INFORMATION
  Report Type: Spontaneous
  Country: JP (occurrence: JP)
  Receive Date: 20240627
  Receipt Date: 20240926
  Transmission Date: 20241017
  Serious: Yes (Death, Hospitalization, Other)
  Sender: MERCK
  Company Number: JP-MSD-2406JPN002584J

PATIENT
  Age: 77 Year
  Sex: Male
  Weight: 57 kg

DRUGS (4)
  1. KEYTRUDA [Suspect]
     Active Substance: PEMBROLIZUMAB
     Indication: Lip and/or oral cavity cancer
     Dosage: 200 MILLIGRAM, Q3W
     Route: 041
     Dates: start: 20240116
  2. FLUOROURACIL [Suspect]
     Active Substance: FLUOROURACIL
     Indication: Lip and/or oral cavity cancer
     Dosage: 3750 MILLIGRAM, Q3W
     Route: 065
     Dates: start: 20240116
  3. CISPLATIN [Suspect]
     Active Substance: CISPLATIN
     Indication: Lip and/or oral cavity cancer
     Dosage: 100 MILLIGRAM, Q3W
     Route: 065
     Dates: start: 20190517, end: 20190902
  4. CISPLATIN [Suspect]
     Active Substance: CISPLATIN
     Dosage: 100 MILLIGRAM, Q3W
     Route: 065
     Dates: start: 20240116

REACTIONS (1)
  - Necrotising oesophagitis [Fatal]

NARRATIVE: CASE EVENT DATE: 20240127
